FAERS Safety Report 8684390 (Version 2)
Quarter: 2012Q4

REPORT INFORMATION
  Report Type: 
  Country: IT (occurrence: IT)
  Receive Date: 20120726
  Receipt Date: 20121212
  Transmission Date: 20130627
  Serious: Yes (Other)
  Sender: FDA-Public Use
  Company Number: IT-ASTRAZENECA-2012SE50054

PATIENT
  Age: 3818 Day
  Sex: Male

DRUGS (3)
  1. SEROQUEL [Suspect]
     Indication: AUTISM
     Route: 048
     Dates: start: 20120608, end: 20120703
  2. TALOFEN [Concomitant]
     Dosage: 50 GTT, 4g/100 mL
     Route: 048
  3. MELATONIN [Concomitant]

REACTIONS (2)
  - Belligerence [Recovered/Resolved]
  - Conduct disorder [Recovered/Resolved]
